FAERS Safety Report 21207959 (Version 8)
Quarter: 2023Q2

REPORT INFORMATION
  Report Type: Spontaneous
  Country: US (occurrence: US)
  Receive Date: 20220812
  Receipt Date: 20230628
  Transmission Date: 20230722
  Serious: No
  Sender: FDA-Public Use
  Company Number: US-PFIZER INC-PV202200042005

PATIENT
  Age: 74 Year
  Sex: Female

DRUGS (1)
  1. IBRANCE [Suspect]
     Active Substance: PALBOCICLIB
     Indication: Breast cancer female
     Dosage: 125 MG, CYCLIC (1 TABLET ONCE A DAY, 21 DAYS ON AND 7 DAYS OFF)
     Route: 048

REACTIONS (20)
  - Red blood cell count increased [Unknown]
  - Hiccups [Unknown]
  - Cough [Recovering/Resolving]
  - Fatigue [Recovering/Resolving]
  - Sluggishness [Unknown]
  - Vomiting [Recovered/Resolved]
  - Eating disorder [Unknown]
  - Dyspnoea exertional [Unknown]
  - Decreased appetite [Recovering/Resolving]
  - COVID-19 [Unknown]
  - Malaise [Unknown]
  - Abdominal distension [Unknown]
  - Hepatic mass [Unknown]
  - Stomach mass [Unknown]
  - Alopecia [Unknown]
  - Ageusia [Recovering/Resolving]
  - Dysgeusia [Unknown]
  - Weight decreased [Unknown]
  - Asthenia [Not Recovered/Not Resolved]
  - Throat irritation [Unknown]
